FAERS Safety Report 8129775-5 (Version None)
Quarter: 2012Q1

REPORT INFORMATION
  Report Type: 
  Country: None (occurrence: None)
  Receive Date: 20120210
  Receipt Date: 20120130
  Transmission Date: 20120608
  Serious: Yes (Hospitalization, Other)
  Sender: FDA-Public Use
  Company Number: PHHY2012JP008936

PATIENT
  Sex: Female

DRUGS (10)
  1. AMPHOTERICIN B [Concomitant]
     Indication: PNEUMOCYSTIS JIROVECI PNEUMONIA
  2. CYCLOSPORINE [Interacting]
     Indication: STILL'S DISEASE ADULT ONSET
     Dosage: UNK UKN, UNK
     Route: 048
     Dates: start: 20090101
  3. IRBESARTAN [Concomitant]
     Indication: HYPERTENSION
     Route: 048
  4. PENTAMIDINE [Concomitant]
     Indication: PNEUMOCYSTIS JIROVECI PNEUMONIA
  5. CILNIDIPINE [Concomitant]
     Indication: HYPERTENSION
     Route: 048
  6. CYCLOPHOSPHAMIDE [Concomitant]
     Indication: STILL'S DISEASE ADULT ONSET
     Route: 042
  7. CEFPIROME SULFATE [Concomitant]
     Indication: PNEUMOCYSTIS JIROVECI PNEUMONIA
  8. PREDNISOLONE [Suspect]
     Indication: STILL'S DISEASE ADULT ONSET
     Dosage: UNK
     Route: 048
     Dates: start: 20090101
  9. AMLODIPINE [Interacting]
     Indication: HYPERTENSION
     Route: 048
  10. SODIUM POLYSTYRENE SULFONATE [Concomitant]
     Route: 048

REACTIONS (6)
  - HYPERTENSION [None]
  - CONDITION AGGRAVATED [None]
  - RENAL FAILURE ACUTE [None]
  - STILL'S DISEASE ADULT ONSET [None]
  - PNEUMOCYSTIS JIROVECI PNEUMONIA [None]
  - DRUG INTERACTION [None]
